FAERS Safety Report 19521102 (Version 2)
Quarter: 2022Q3

REPORT INFORMATION
  Report Type: Report from Study
  Country: US (occurrence: US)
  Receive Date: 20210712
  Receipt Date: 20220927
  Transmission Date: 20221027
  Serious: Yes (Other)
  Sender: FDA-Public Use
  Company Number: US-TAKEDA-US201925925

PATIENT
  Age: 68 Year
  Sex: Male
  Weight: 96 kg

DRUGS (15)
  1. LANADELUMAB [Suspect]
     Active Substance: LANADELUMAB
     Indication: Immune system disorder
     Dosage: 300 MILLIGRAM, Q2WEEKS
     Route: 058
     Dates: start: 20180412
  2. LANADELUMAB [Suspect]
     Active Substance: LANADELUMAB
     Dosage: 300 MILLIGRAM, Q2WEEKS
     Route: 058
     Dates: start: 20180512
  3. TUMS [Concomitant]
     Active Substance: CALCIUM CARBONATE
     Dosage: UNK
     Route: 065
  4. FIRAZYR [Concomitant]
     Active Substance: ICATIBANT ACETATE
     Dosage: UNK
     Route: 065
  5. DESIPRAMINE [Concomitant]
     Active Substance: DESIPRAMINE
     Dosage: UNK
     Route: 065
  6. VALACYCLOVIR HYDROCHLORIDE [Concomitant]
     Active Substance: VALACYCLOVIR HYDROCHLORIDE
     Indication: Product used for unknown indication
  7. FLUTICASONE [Concomitant]
     Active Substance: FLUTICASONE
     Dosage: UNK
     Route: 065
  8. ALOE VERA LEAF [Concomitant]
     Active Substance: ALOE VERA LEAF
     Indication: Product used for unknown indication
  9. VITAMIN D NOS [Concomitant]
     Active Substance: VITAMIN D NOS
     Indication: Product used for unknown indication
  10. FLONASE [Concomitant]
     Active Substance: FLUTICASONE PROPIONATE
     Indication: Product used for unknown indication
  11. DORZOLAMIDE + TIMOLOL GENOPTIM [Concomitant]
     Indication: Product used for unknown indication
  12. ATENOLOL AND CHLORTHALIDONE [Concomitant]
     Active Substance: ATENOLOL\CHLORTHALIDONE
     Indication: Product used for unknown indication
  13. DANAZOL [Concomitant]
     Active Substance: DANAZOL
     Indication: Product used for unknown indication
  14. VITAMIN B12 [Concomitant]
     Active Substance: CYANOCOBALAMIN
     Indication: Product used for unknown indication
  15. PRILOSEC [Concomitant]
     Active Substance: OMEPRAZOLE MAGNESIUM
     Indication: Product used for unknown indication

REACTIONS (5)
  - Glaucoma [Unknown]
  - COVID-19 [Unknown]
  - Toothache [Unknown]
  - Bladder disorder [Unknown]
  - Prostate examination abnormal [Unknown]

NARRATIVE: CASE EVENT DATE: 20190802
